FAERS Safety Report 6645592-7 (Version None)
Quarter: 2010Q1

REPORT INFORMATION
  Report Type: 
  Country: None (occurrence: None)
  Receive Date: 20100319
  Receipt Date: 20100319
  Transmission Date: 20100710
  Serious: Yes (Hospitalization, Other)
  Sender: FDA-Public Use
  Company Number: None

PATIENT
  Sex: Male
  Weight: 79 kg

DRUGS (3)
  1. CLEVIPREX [Suspect]
     Indication: BLOOD PRESSURE INADEQUATELY CONTROLLED
     Dosage: 16 MG/HOUR IV DRIP
     Route: 041
     Dates: start: 20100316, end: 20100317
  2. CLEVIPREX [Suspect]
     Indication: HAEMORRHAGIC STROKE
     Dosage: 16 MG/HOUR IV DRIP
     Route: 041
     Dates: start: 20100316, end: 20100317
  3. CLEVIPREX [Suspect]

REACTIONS (2)
  - DEEP VEIN THROMBOSIS [None]
  - INFUSION SITE ERYTHEMA [None]
